FAERS Safety Report 6617445-1 (Version None)
Quarter: 2010Q1

REPORT INFORMATION
  Report Type: 
  Country: None (occurrence: None)
  Receive Date: 20100302
  Receipt Date: 20100216
  Transmission Date: 20100710
  Serious: Yes (Other)
  Sender: FDA-Public Use
  Company Number: 20100074

PATIENT
  Age: 41 Year
  Sex: Female

DRUGS (1)
  1. EPINEPHRINE [Suspect]
     Indication: ACCIDENTAL EXPOSURE
     Dosage: 0.3 MG INJECTION NOS

REACTIONS (6)
  - ACCIDENTAL EXPOSURE [None]
  - INJURY ASSOCIATED WITH DEVICE [None]
  - NO THERAPEUTIC RESPONSE [None]
  - PAIN [None]
  - PALLOR [None]
  - PERIPHERAL COLDNESS [None]
